FAERS Safety Report 7032114-4 (Version None)
Quarter: 2010Q4

REPORT INFORMATION
  Report Type: 
  Country: None (occurrence: None)
  Receive Date: 20101001
  Receipt Date: 20100916
  Transmission Date: 20110411
  Serious: Yes (Hospitalization)
  Sender: FDA-Public Use
  Company Number: GB-003695

PATIENT
  Age: 44 Year
  Sex: Female
  Weight: 76 kg

DRUGS (13)
  1. DESMOPRESSIN ACETATE [Suspect]
     Indication: ENURESIS
     Dosage: (200 ?G ORAL)
     Route: 048
     Dates: start: 20070514
  2. ASPIRIN [Concomitant]
  3. CLOBAZAM [Concomitant]
  4. DOMPERIDONE [Concomitant]
  5. FOLIC ACID [Concomitant]
  6. GLICLAZIDE [Concomitant]
  7. LEVETIRACETAM [Concomitant]
  8. METFORMIN [Concomitant]
  9. PARACETAMOL [Concomitant]
  10. PIOGLITAZONE HCL [Concomitant]
  11. RAMIPRIL [Concomitant]
  12. ROSUVASTATIN [Concomitant]
  13. VALPROATE SODIUM [Concomitant]

REACTIONS (2)
  - CONVULSION [None]
  - HYPONATRAEMIA [None]
